FAERS Safety Report 23613819 (Version 1)
Quarter: 2024Q1

REPORT INFORMATION
  Report Type: Spontaneous
  Country: FR (occurrence: FR)
  Receive Date: 20240310
  Receipt Date: 20240310
  Transmission Date: 20240410
  Serious: Yes (Other)
  Sender: FDA-Public Use
  Company Number: FR-AFSSAPS-PP2024000176

PATIENT
  Age: 35 Year
  Sex: Female
  Weight: 85 kg

DRUGS (4)
  1. FLUOXETINE HYDROCHLORIDE [Suspect]
     Active Substance: FLUOXETINE HYDROCHLORIDE
     Indication: Depression
     Dosage: 60 MILLIGRAM, ONCE A DAY(60MG/DAY)
     Route: 048
     Dates: start: 20230907
  2. ALPRAZOLAM [Suspect]
     Active Substance: ALPRAZOLAM
     Indication: Anxiety
     Dosage: 0.5 MILLIGRAM, 3 TIMES A DAY( 0.5 MG 3 TIMES A DAY)
     Route: 048
     Dates: start: 20231127
  3. CYAMEMAZINE [Suspect]
     Active Substance: CYAMEMAZINE
     Indication: Anxiety
     Dosage: 50 MILLIGRAM, 3 TIMES A DAY(50MG/ 3 TIMES A DAY)
     Route: 048
     Dates: start: 20231127
  4. PRAZOSIN [Concomitant]
     Active Substance: PRAZOSIN
     Indication: Product used for unknown indication
     Dosage: 10 MILLIGRAM, ONCE A DAY(10 MG/D)
     Route: 048

REACTIONS (2)
  - Amnesia [Not Recovered/Not Resolved]
  - Victim of sexual abuse [Recovered/Resolved with Sequelae]

NARRATIVE: CASE EVENT DATE: 20231129
